FAERS Safety Report 9002346 (Version 2)
Quarter: 2013Q1

REPORT INFORMATION
  Report Type: Spontaneous
  Country: US (occurrence: None)
  Receive Date: 20121121
  Receipt Date: 20130128
  Transmission Date: 20140127
  Serious: Yes (Hospitalization)
  Sender: FDA-Public Use
  Company Number: 31942

PATIENT
  Sex: Male
  Weight: 86.18 kg

DRUGS (14)
  1. GLASSIA [Suspect]
     Indication: ALPHA-1 ANTI-TRYPSIN DEFICIENCY
     Route: 042
     Dates: start: 201108
  2. ADVAIR [Concomitant]
  3. CRESTOR [Concomitant]
  4. DIOVAN [Concomitant]
  5. SYNTHROID [Concomitant]
  6. SPIRIVA [Concomitant]
  7. SINGULAIR [Concomitant]
  8. PROAIR [Concomitant]
  9. LOVAZA [Concomitant]
  10. LEXAPRO [Concomitant]
  11. ASPIRIN 81MG [Concomitant]
  12. TRAMADOL [Concomitant]
  13. INDOCIN [Concomitant]
  14. NASONEX [Concomitant]

REACTIONS (8)
  - Arthralgia [None]
  - Cellulitis [None]
  - Condition aggravated [None]
  - Renal scan abnormal [None]
  - Pancreatic disorder [None]
  - Nasopharyngitis [None]
  - Forced expiratory volume decreased [None]
  - Inguinal hernia [None]
